FAERS Safety Report 10309058 (Version 2)
Quarter: 2014Q3

REPORT INFORMATION
  Report Type: Spontaneous
  Country: US (occurrence: None)
  Receive Date: 20140714
  Receipt Date: 20140718
  Transmission Date: 20150326
  Serious: Yes (Other)
  Sender: FDA-Public Use
  Company Number: 2014-US-008386

PATIENT
  Age: 31 Year
  Sex: Female
  Weight: 58.5 kg

DRUGS (3)
  1. XYREM [Suspect]
     Active Substance: SODIUM OXYBATE
     Indication: NARCOLEPSY
     Route: 048
     Dates: start: 200711
  2. TOPAMAX [Concomitant]
     Active Substance: TOPIRAMATE
  3. MAXALT (RIZATRIPTAN BENZOATE) [Concomitant]
     Active Substance: RIZATRIPTAN BENZOATE

REACTIONS (5)
  - Pregnancy [None]
  - Maternal exposure before pregnancy [None]
  - Cardiac ablation [None]
  - Abdominoplasty [None]
  - Caesarean section [None]

NARRATIVE: CASE EVENT DATE: 2007
